FAERS Safety Report 5085821-7 (Version None)
Quarter: 2006Q3

REPORT INFORMATION
  Report Type: 
  Country: None (occurrence: None)
  Receive Date: 20060822
  Receipt Date: 20060807
  Transmission Date: 20061208
  Serious: Yes (Hospitalization, Other)
  Sender: FDA-Public Use
  Company Number: 2006AP03779

PATIENT
  Age: 13763 Day
  Sex: Male

DRUGS (9)
  1. SEROQUEL [Suspect]
     Indication: BIPOLAR I DISORDER
     Dosage: OPEN LABEL
     Route: 048
     Dates: start: 20060304
  2. SEROQUEL [Suspect]
     Dosage: OPEN LABEL
     Route: 048
     Dates: start: 20060305
  3. SEROQUEL [Suspect]
     Dosage: OPEN LABEL
     Route: 048
     Dates: start: 20060308
  4. SEROQUEL [Suspect]
     Route: 048
     Dates: start: 20060724
  5. SEROQUEL [Suspect]
     Route: 048
     Dates: start: 20060727
  6. SEROQUEL [Suspect]
     Route: 048
     Dates: start: 20060731
  7. PLACEBO [Suspect]
     Indication: BIPOLAR I DISORDER
     Dosage: RANDOMISED TREATMENT
     Route: 048
     Dates: start: 20060724
  8. PLACEBO [Suspect]
     Dosage: RANDOMISED TREATMENT
     Route: 048
     Dates: start: 20060727
  9. PLACEBO [Suspect]
     Dosage: RANDOMISED TREATMENT
     Route: 048
     Dates: start: 20060731

REACTIONS (4)
  - BLOOD ALKALINE PHOSPHATASE INCREASED [None]
  - BLOOD TRIGLYCERIDES INCREASED [None]
  - EPISTAXIS [None]
  - MALIGNANT HYPERTENSION [None]
